FAERS Safety Report 19690626 (Version 1)
Quarter: 2021Q3

REPORT INFORMATION
  Report Type: Spontaneous
  Country: US (occurrence: US)
  Receive Date: 20210812
  Receipt Date: 20210812
  Transmission Date: 20211014
  Serious: Yes (Hospitalization)
  Sender: FDA-Public Use
  Company Number: US-DRREDDYS-LIT/USA/21/0138709

PATIENT
  Age: 45 Year
  Sex: Male

DRUGS (7)
  1. VASOPRESSIN. [Suspect]
     Active Substance: VASOPRESSIN
     Indication: DISTRIBUTIVE SHOCK
     Dosage: ESCALATING DOSES
  2. METHYLENE BLUE. [Suspect]
     Active Substance: METHYLENE BLUE
     Indication: DISTRIBUTIVE SHOCK
     Dosage: ESCALATING DOSES
  3. NOREPINEPHRINE. [Suspect]
     Active Substance: NOREPINEPHRINE
     Indication: DISTRIBUTIVE SHOCK
     Dosage: ESCALATING DOSES
  4. EPINEPHRINE. [Suspect]
     Active Substance: EPINEPHRINE
     Indication: DISTRIBUTIVE SHOCK
     Dosage: ESCALATING DOSES
  5. HYDROXOCOBALAMIN [Suspect]
     Active Substance: HYDROXOCOBALAMIN
     Indication: DISTRIBUTIVE SHOCK
     Dosage: ESCALATING DOSES
  6. MILRINONE [Suspect]
     Active Substance: MILRINONE
     Indication: DISTRIBUTIVE SHOCK
     Dosage: ESCALATING DOSES
  7. DOBUTAMINE HYDROCHLORIDE. [Suspect]
     Active Substance: DOBUTAMINE HYDROCHLORIDE
     Indication: DISTRIBUTIVE SHOCK
     Dosage: ESCALATING DOSES

REACTIONS (1)
  - Drug ineffective [Unknown]
